FAERS Safety Report 25324689 (Version 2)
Quarter: 2025Q3

REPORT INFORMATION
  Report Type: Spontaneous
  Country: US (occurrence: US)
  Receive Date: 20250516
  Receipt Date: 20250709
  Transmission Date: 20251020
  Serious: No
  Sender: MERZ
  Company Number: US-MRZWEB-2025050000076

PATIENT

DRUGS (19)
  1. XEOMIN [Suspect]
     Active Substance: INCOBOTULINUMTOXINA
     Indication: Torticollis
     Dosage: 200 INTERNATIONAL UNIT
     Route: 023
     Dates: start: 20250516, end: 20250516
  2. XEOMIN [Suspect]
     Active Substance: INCOBOTULINUMTOXINA
     Indication: Cervicogenic headache
     Route: 030
  3. XEOMIN [Suspect]
     Active Substance: INCOBOTULINUMTOXINA
  4. BOTOX [Concomitant]
     Active Substance: ONABOTULINUMTOXINA
     Dosage: 200 INTERNATIONAL UNIT
     Route: 030
     Dates: start: 20201214, end: 20201214
  5. BOTOX [Concomitant]
     Active Substance: ONABOTULINUMTOXINA
     Dosage: 200 INTERNATIONAL UNIT
     Route: 030
  6. BUPROPION HYDROCHLORIDE [Concomitant]
     Active Substance: BUPROPION HYDROCHLORIDE
     Dosage: 1 DOSAGE FORM
     Route: 048
  7. FISH OIL [Concomitant]
     Active Substance: FISH OIL
     Dosage: 1 DOSAGE FORM
     Route: 048
  8. LORATADINE [Concomitant]
     Active Substance: LORATADINE
     Dosage: 1 DOSAGE FORM
     Route: 048
  9. NURTEC ODT [Concomitant]
     Active Substance: RIMEGEPANT SULFATE
     Indication: Migraine
     Route: 048
  10. VITAMIN D3 [Concomitant]
     Active Substance: CHOLECALCIFEROL
     Route: 048
  11. TYLENOL [Concomitant]
     Active Substance: ACETAMINOPHEN
     Indication: Migraine without aura
  12. UNSPECIFIED INGREDIENT [Concomitant]
     Active Substance: UNSPECIFIED INGREDIENT
  13. LYRICA [Concomitant]
     Active Substance: PREGABALIN
  14. TOPAMAX [Concomitant]
     Active Substance: TOPIRAMATE
  15. SUMATRIPTAN [Concomitant]
     Active Substance: SUMATRIPTAN
  16. RIZATRIPTAN [Concomitant]
     Active Substance: RIZATRIPTAN
  17. BACLOFEN [Concomitant]
     Active Substance: BACLOFEN
  18. GABAPENTIN [Concomitant]
     Active Substance: GABAPENTIN
  19. CYCLOBENZAPRINE [Concomitant]
     Active Substance: CYCLOBENZAPRINE

REACTIONS (2)
  - Product use in unapproved indication [Unknown]
  - Incorrect route of product administration [Unknown]

NARRATIVE: CASE EVENT DATE: 20250516
